FAERS Safety Report 14948182 (Version 1)
Quarter: 2018Q2

REPORT INFORMATION
  Report Type: Spontaneous
  Country: US (occurrence: US)
  Receive Date: 20180529
  Receipt Date: 20180529
  Transmission Date: 20180711
  Serious: Yes (Hospitalization, Other)
  Sender: FDA-Public Use
  Company Number: US-NOVOPROD-602148

PATIENT
  Age: 51 Year
  Sex: Male

DRUGS (5)
  1. NOVOLOG [Suspect]
     Active Substance: INSULIN ASPART
     Dosage: INCREASED SLIDING SCALE
     Route: 058
     Dates: start: 201706
  2. TRESIBA FLEXTOUCH U200 [Suspect]
     Active Substance: INSULIN DEGLUDEC
     Dosage: 100 U, BID
     Route: 058
     Dates: start: 201706
  3. NOVOLOG [Suspect]
     Active Substance: INSULIN ASPART
     Indication: TYPE 1 DIABETES MELLITUS
     Dosage: SLIDING SCALE (MAX 200 UNITS PER DAY; 120-140 U/DAY COVERAGE)
     Route: 058
     Dates: end: 201706
  4. HUMULIN R [Concomitant]
     Active Substance: INSULIN HUMAN
     Indication: TYPE 1 DIABETES MELLITUS
     Dosage: 400 U, QD
     Route: 058
  5. TRESIBA FLEXTOUCH U200 [Suspect]
     Active Substance: INSULIN DEGLUDEC
     Indication: TYPE 1 DIABETES MELLITUS
     Dosage: 100 U, QD
     Route: 058
     Dates: start: 201701, end: 201706

REACTIONS (4)
  - Blood glucose increased [Recovered/Resolved]
  - Constipation [Unknown]
  - Weight increased [Unknown]
  - Hospitalisation [Recovered/Resolved]

NARRATIVE: CASE EVENT DATE: 201706
